FAERS Safety Report 11190183 (Version 1)
Quarter: 2015Q2

REPORT INFORMATION
  Report Type: Spontaneous
  Country: GB (occurrence: GB)
  Receive Date: 20150615
  Receipt Date: 20150615
  Transmission Date: 20150821
  Serious: Yes (Other)
  Sender: FDA-Public Use
  Company Number: GB-ABBVIE-15P-167-1409256-00

PATIENT
  Age: 8 Year
  Sex: Female

DRUGS (3)
  1. EPILIM [Suspect]
     Active Substance: VALPROATE SODIUM
     Indication: EPILEPSY
     Route: 048
     Dates: start: 20150331, end: 20150331
  2. IBUPROFEN. [Concomitant]
     Active Substance: IBUPROFEN
     Indication: PRODUCT USED FOR UNKNOWN INDICATION
  3. PARACETAMOL [Concomitant]
     Active Substance: ACETAMINOPHEN
     Indication: PRODUCT USED FOR UNKNOWN INDICATION

REACTIONS (5)
  - Fatigue [Recovered/Resolved]
  - Seizure [Recovered/Resolved]
  - Mood altered [Recovered/Resolved]
  - Decreased activity [Recovered/Resolved]
  - Psychiatric symptom [Recovered/Resolved]

NARRATIVE: CASE EVENT DATE: 20150331
